FAERS Safety Report 11214904 (Version 1)
Quarter: 2015Q2

REPORT INFORMATION
  Report Type: Report from Study
  Country: CA (occurrence: CA)
  Receive Date: 20150624
  Receipt Date: 20150624
  Transmission Date: 20150821
  Serious: Yes (Other)
  Sender: FDA-Public Use
  Company Number: CA-ABBVIE-15K-028-1411872-00

PATIENT
  Age: 61 Year
  Sex: Female
  Weight: 83.99 kg

DRUGS (1)
  1. HUMIRA [Suspect]
     Active Substance: ADALIMUMAB
     Indication: RHEUMATOID ARTHRITIS
     Route: 058
     Dates: start: 20140821, end: 2015

REACTIONS (4)
  - Chest discomfort [Recovering/Resolving]
  - Sinus headache [Recovering/Resolving]
  - Temporomandibular joint syndrome [Not Recovered/Not Resolved]
  - Toothache [Recovering/Resolving]

NARRATIVE: CASE EVENT DATE: 201506
